FAERS Safety Report 12555998 (Version 1)
Quarter: 2016Q3

REPORT INFORMATION
  Report Type: Spontaneous
  Country: US (occurrence: US)
  Receive Date: 20160714
  Receipt Date: 20160714
  Transmission Date: 20161109
  Serious: No
  Sender: FDA-Public Use
  Company Number: US-DRREDDYS-DRL/USA/16/0080085

PATIENT
  Age: 46 Year
  Sex: Female
  Weight: 64.4 kg

DRUGS (2)
  1. LAMOTRIGINE EXTENDED RELEASE TABLETS [Suspect]
     Active Substance: LAMOTRIGINE
     Route: 048
  2. LAMOTRIGINE EXTENDED RELEASE TABLETS [Suspect]
     Active Substance: LAMOTRIGINE
     Indication: COMPLEX PARTIAL SEIZURES
     Route: 048

REACTIONS (5)
  - Pulmonary congestion [Recovered/Resolved]
  - Dysphagia [Unknown]
  - Weight decreased [Unknown]
  - Dyspnoea [Unknown]
  - Odynophagia [Recovering/Resolving]

NARRATIVE: CASE EVENT DATE: 201605
